FAERS Safety Report 7408824-3 (Version None)
Quarter: 2011Q2

REPORT INFORMATION
  Report Type: 
  Country: None (occurrence: None)
  Receive Date: 20110412
  Receipt Date: 20110407
  Transmission Date: 20111010
  Serious: Yes (Life-Threatening, Hospitalization, Other)
  Sender: FDA-Public Use
  Company Number: US-ASTRAZENECA-2011SE02357

PATIENT
  Age: 71 Year
  Sex: Female

DRUGS (16)
  1. NEXIUM [Suspect]
     Route: 048
  2. CITALOPRAM HYDROBROMIDE [Concomitant]
  3. XALATAN [Concomitant]
  4. MULTI-VITAMIN [Concomitant]
  5. OPANA [Concomitant]
     Indication: PAIN
  6. RENAGEL [Concomitant]
  7. PREDNISONE [Concomitant]
  8. ACCUPRIL [Concomitant]
  9. LOMOTIL [Concomitant]
  10. TRUSOPT [Concomitant]
  11. VALCYTE [Concomitant]
  12. COMBIGAN [Concomitant]
  13. COREG [Concomitant]
  14. FOLIC ACID [Concomitant]
  15. FISH OILS [Concomitant]
  16. WARFARIN [Concomitant]
     Dosage: 3 MG ALTERNATING WITH 4 MG

REACTIONS (9)
  - INFECTION [None]
  - HYPERKALAEMIA [None]
  - RENAL DISORDER [None]
  - INTESTINAL FUNCTIONAL DISORDER [None]
  - PROCEDURAL HYPOTENSION [None]
  - HAEMORRHAGE [None]
  - ARTHROPATHY [None]
  - HYPOKALAEMIA [None]
  - DYSPEPSIA [None]
